FAERS Safety Report 4464972-1 (Version None)
Quarter: 2004Q4

REPORT INFORMATION
  Report Type: 
  Country: None (occurrence: None)
  Receive Date: 20041004
  Receipt Date: 20040429
  Transmission Date: 20050328
  Serious: No
  Sender: FDA-Public Use
  Company Number: 368188

PATIENT
  Age: 55 Year
  Sex: Male

DRUGS (23)
  1. COREG [Suspect]
     Dosage: 9.375MG TWICE PER DAY
     Route: 048
     Dates: start: 20000201
  2. GLYCEF [Concomitant]
  3. BREWERS YEAST [Concomitant]
  4. SPIRONOLACTONE [Concomitant]
  5. MULTI-VITAMIN [Concomitant]
  6. MAGNESIUM [Concomitant]
  7. COENZYME Q10 [Concomitant]
  8. POTASSIUM [Concomitant]
  9. PRAVACHOL [Concomitant]
  10. TRICOR [Concomitant]
  11. ALTACE [Concomitant]
  12. ISOSORBIDE DN [Concomitant]
  13. GARLIC OIL [Concomitant]
  14. FISH OIL [Concomitant]
  15. GLUCOSAMINE SULFATE [Concomitant]
  16. ASPIRIN [Concomitant]
  17. FOLIC ACID [Concomitant]
  18. VITAMIN E [Concomitant]
  19. CALCIUM [Concomitant]
  20. VITAMIN C [Concomitant]
  21. SELENIUM TRACE METAL ADDITIVE [Concomitant]
  22. GELATIN [Concomitant]
  23. MAGNESIUM [Concomitant]

REACTIONS (2)
  - GLYCOSYLATED HAEMOGLOBIN INCREASED [None]
  - HYPERGLYCAEMIA [None]
